FAERS Safety Report 9539005 (Version 2)
Quarter: 2013Q4

REPORT INFORMATION
  Report Type: Spontaneous
  Country: US (occurrence: US)
  Receive Date: 20130920
  Receipt Date: 20131108
  Transmission Date: 20140711
  Serious: Yes (Death)
  Sender: FDA-Public Use
  Company Number: US-JNJFOC-20130910797

PATIENT
  Age: 6 Decade
  Sex: Male

DRUGS (2)
  1. NUCYNTA IR [Suspect]
     Indication: BACK PAIN
     Dosage: TWICE A DAY
     Route: 048
  2. GABAPENTIN [Concomitant]
     Route: 065

REACTIONS (1)
  - Death [Fatal]
